FAERS Safety Report 17696494 (Version 1)
Quarter: 2020Q2

REPORT INFORMATION
  Report Type: Spontaneous
  Country: US (occurrence: US)
  Receive Date: 20200423
  Receipt Date: 20200423
  Transmission Date: 20200714
  Serious: Yes (Other)
  Sender: FDA-Public Use
  Company Number: US-NAPPMUNDI-USA-2020-0150709

PATIENT

DRUGS (5)
  1. OXYCONTIN [Suspect]
     Active Substance: OXYCODONE HYDROCHLORIDE
     Indication: PROCEDURAL PAIN
     Dosage: 20 MG, UNK
     Route: 048
     Dates: start: 2000
  2. OXYCONTIN [Suspect]
     Active Substance: OXYCODONE HYDROCHLORIDE
     Dosage: 40 MG, UNK
     Route: 048
     Dates: end: 2009
  3. OXYCONTIN [Suspect]
     Active Substance: OXYCODONE HYDROCHLORIDE
     Dosage: 80 MG, UNK
     Route: 048
     Dates: start: 2001, end: 2009
  4. PERCOCET                           /00446701/ [Suspect]
     Active Substance: ACETAMINOPHEN\OXYCODONE HYDROCHLORIDE\OXYCODONE TEREPHTHALATE
     Indication: PROCEDURAL PAIN
     Dosage: 5/325 MG UNK
     Route: 048
     Dates: start: 2000, end: 2009
  5. MORPHINE SULFATE (SIMILAR TO NDA 19-516) [Suspect]
     Active Substance: MORPHINE SULFATE
     Indication: PROCEDURAL PAIN
     Dosage: UNK
     Route: 048
     Dates: start: 2001, end: 2009

REACTIONS (6)
  - Pain [Unknown]
  - Drug withdrawal syndrome [Unknown]
  - Quality of life decreased [Unknown]
  - Malaise [Unknown]
  - Drug dependence [Recovering/Resolving]
  - Drug ineffective [Unknown]
